FAERS Safety Report 7252516-0 (Version None)
Quarter: 2011Q1

REPORT INFORMATION
  Report Type: 
  Country: None (occurrence: None)
  Receive Date: 20110129
  Receipt Date: 20100113
  Transmission Date: 20110831
  Serious: No
  Sender: FDA-Public Use
  Company Number: US-ABBOTT-10P-163-0619769-00

PATIENT
  Sex: Female
  Weight: 65.83 kg

DRUGS (6)
  1. MILOXOCAM [Concomitant]
     Indication: PSORIATIC ARTHROPATHY
  2. PRAVASTATIN [Concomitant]
     Indication: HYPERCHOLESTEROLAEMIA
  3. PREDNISONE [Concomitant]
     Indication: PSORIATIC ARTHROPATHY
  4. TYLENOL W/ CODEINE NO. 3 [Concomitant]
     Indication: PRODUCT USED FOR UNKNOWN INDICATION
  5. HUMIRA [Suspect]
     Indication: PSORIATIC ARTHROPATHY
     Dates: start: 20050101
  6. ESTROGENIC SUBSTANCE [Concomitant]
     Indication: HORMONE REPLACEMENT THERAPY

REACTIONS (3)
  - BRONCHITIS [None]
  - PNEUMONIA [None]
  - NASOPHARYNGITIS [None]
